FAERS Safety Report 11658180 (Version 2)
Quarter: 2015Q4

REPORT INFORMATION
  Report Type: Report from Study
  Country: FR (occurrence: FR)
  Receive Date: 20151024
  Receipt Date: 20151123
  Transmission Date: 20160304
  Serious: Yes (Other)
  Sender: FDA-Public Use
  Company Number: FR-BRISTOL-MYERS SQUIBB COMPANY-BMS-2015-062710

PATIENT
  Age: 61 Year
  Sex: Male
  Weight: 73 kg

DRUGS (4)
  1. OXYCONTIN [Concomitant]
     Active Substance: OXYCODONE HYDROCHLORIDE
     Indication: PAIN
     Dosage: 2 DF, QD
     Route: 048
  2. NIVOLUMAB [Suspect]
     Active Substance: NIVOLUMAB
     Indication: NON-SMALL CELL LUNG CANCER
     Dosage: 210 MG, UNK
     Route: 065
     Dates: start: 20150723, end: 20150903
  3. EFFERALGAN [Concomitant]
     Active Substance: ACETAMINOPHEN
     Indication: PAIN
     Dosage: 6 DF, QD
     Route: 048
  4. OXYNORMORO [Concomitant]
     Active Substance: OXYCODONE
     Indication: PAIN
     Dosage: 5 MG, UNK
     Route: 048

REACTIONS (17)
  - Hepatocellular injury [Not Recovered/Not Resolved]
  - Asthenia [Not Recovered/Not Resolved]
  - Platelet disorder [Unknown]
  - General physical health deterioration [Not Recovered/Not Resolved]
  - Aspartate aminotransferase abnormal [Unknown]
  - Haemoptysis [Not Recovered/Not Resolved]
  - Lymphopenia [Recovered/Resolved]
  - White blood cell disorder [Unknown]
  - Respiratory tract congestion [Not Recovered/Not Resolved]
  - Blood bilirubin abnormal [Unknown]
  - Fungal infection [Not Recovered/Not Resolved]
  - Hypotension [Not Recovered/Not Resolved]
  - Haemoglobin decreased [Unknown]
  - Neutrophil count abnormal [Unknown]
  - Hyponatraemia [Not Recovered/Not Resolved]
  - Alanine aminotransferase abnormal [Unknown]
  - Anaemia [Not Recovered/Not Resolved]

NARRATIVE: CASE EVENT DATE: 201507
